FAERS Safety Report 9393464 (Version 1)
Quarter: 2013Q3

REPORT INFORMATION
  Report Type: Spontaneous
  Country: US (occurrence: None)
  Receive Date: 20130709
  Receipt Date: 20130709
  Transmission Date: 20140515
  Serious: Yes (Hospitalization)
  Sender: FDA-Public Use
  Company Number: None

PATIENT
  Age: 72 Year
  Sex: Male
  Weight: 111 kg

DRUGS (8)
  1. 5-FLUOROURACIL (5-FU) [Suspect]
  2. OXALIPLATIN (ELOXATIN) [Suspect]
  3. ASPIRIN [Concomitant]
  4. COMBIVENT [Concomitant]
  5. ENALAPRIL [Concomitant]
  6. LOVASTATIN [Concomitant]
  7. METOPROLOL [Concomitant]
  8. SYNTHROID [Concomitant]

REACTIONS (2)
  - Nasopharyngitis [None]
  - Syncope [None]
